FAERS Safety Report 4632259-X (Version None)
Quarter: 2005Q2

REPORT INFORMATION
  Report Type: 
  Country: None (occurrence: None)
  Receive Date: 20050411
  Receipt Date: 20050309
  Transmission Date: 20051028
  Serious: Yes (Other)
  Sender: FDA-Public Use
  Company Number: JP-ROCHE-398693

PATIENT
  Age: 13 Year
  Sex: Female

DRUGS (6)
  1. TAMIFLU [Suspect]
     Route: 048
     Dates: start: 20050304
  2. ASVERIN [Suspect]
     Route: 048
     Dates: start: 20050304
  3. PERIACTIN [Suspect]
     Route: 048
     Dates: start: 20050304
  4. ZADITEN [Suspect]
     Indication: HYPERSENSITIVITY
     Route: 048
     Dates: start: 20041014
  5. MUCODYNE [Concomitant]
     Route: 048
     Dates: start: 20050304, end: 20050309
  6. BIOFERMIN [Concomitant]
     Route: 048
     Dates: start: 20050304, end: 20050309

REACTIONS (9)
  - ARRHYTHMIA [None]
  - CONVULSION [None]
  - DEPRESSED LEVEL OF CONSCIOUSNESS [None]
  - ELECTROLYTE IMBALANCE [None]
  - FALL [None]
  - HYPOGLYCAEMIA [None]
  - LOSS OF CONSCIOUSNESS [None]
  - PALLOR [None]
  - VACCINATION COMPLICATION [None]
